FAERS Safety Report 17532437 (Version 1)
Quarter: 2020Q1

REPORT INFORMATION
  Report Type: Spontaneous
  Country: BR (occurrence: BR)
  Receive Date: 20200312
  Receipt Date: 20200312
  Transmission Date: 20200409
  Serious: Yes (Other)
  Sender: FDA-Public Use
  Company Number: BR-GLAXOSMITHKLINE-BR2020AMR041412

PATIENT
  Sex: Female

DRUGS (3)
  1. ZINNAT [Suspect]
     Active Substance: CEFUROXIME
     Indication: IMPLANT SITE INFLAMMATION
  2. ZINNAT [Suspect]
     Active Substance: CEFUROXIME
     Indication: URINARY TRACT INFECTION
     Dosage: UNK,500 MG
  3. MAXSULID [Suspect]
     Active Substance: NIMESULIDE
     Indication: PRODUCT USED FOR UNKNOWN INDICATION
     Dosage: UNK

REACTIONS (9)
  - Condition aggravated [Unknown]
  - Fungal infection [Unknown]
  - Vulvovaginal inflammation [Unknown]
  - Discomfort [Unknown]
  - Rash macular [Unknown]
  - Product use in unapproved indication [Unknown]
  - Drug ineffective [Unknown]
  - Off label use [Unknown]
  - Genital rash [Unknown]
